FAERS Safety Report 4319913-4 (Version None)
Quarter: 2004Q1

REPORT INFORMATION
  Report Type: 
  Country: None (occurrence: None)
  Receive Date: 20040316
  Receipt Date: 20040308
  Transmission Date: 20041129
  Serious: Yes (Life-Threatening)
  Sender: FDA-Public Use
  Company Number: 2004AC00007

PATIENT
  Age: 16 Year
  Sex: Female

DRUGS (13)
  1. LIDOCAINE [Suspect]
     Indication: ANAESTHESIA
     Dosage: 10 ML TP
     Route: 061
  2. PHENYLEPHRINE [Suspect]
     Indication: ANAESTHESIA
     Dosage: ONE SPRAY EACH NARE
  3. GLYCOPYRROLATE [Suspect]
     Dosage: 0.5 MG IV
     Route: 042
  4. NITROUS OXIDE [Suspect]
     Indication: GENERAL ANAESTHESIA
  5. ISOFLURANE [Suspect]
     Indication: GENERAL ANAESTHESIA
  6. ESMOLOL [Suspect]
     Dosage: 90 MG DAILY
  7. PROPOFOL [Concomitant]
  8. LIDOCAINE [Concomitant]
  9. CEFAZOLIN [Concomitant]
  10. DEXAMETHASONE [Concomitant]
  11. DIAZEPAM [Concomitant]
  12. FENTANYL [Concomitant]
  13. VECURONIUM BROMIDE [Concomitant]

REACTIONS (8)
  - ANAESTHETIC COMPLICATION [None]
  - BODY TEMPERATURE DECREASED [None]
  - HAEMODYNAMIC INSTABILITY [None]
  - HYPERTENSIVE CRISIS [None]
  - IDIOSYNCRATIC DRUG REACTION [None]
  - MYOCARDIAL ISCHAEMIA [None]
  - PULMONARY OEDEMA [None]
  - SINUS TACHYCARDIA [None]
